FAERS Safety Report 12582715 (Version 1)
Quarter: 2016Q3

REPORT INFORMATION
  Report Type: Spontaneous
  Country: US (occurrence: US)
  Receive Date: 20160722
  Receipt Date: 20160722
  Transmission Date: 20161109
  Serious: No
  Sender: FDA-Public Use
  Company Number: US-AMGEN-USASP2016092566

PATIENT
  Age: 42 Year
  Sex: Male

DRUGS (2)
  1. DOVONEX [Concomitant]
     Active Substance: CALCIPOTRIENE
     Dosage: UNK
  2. ENBREL [Suspect]
     Active Substance: ETANERCEPT
     Indication: PSORIASIS
     Dosage: 50 MG/ML, 2 TIMES/WK
     Route: 058

REACTIONS (2)
  - Drug ineffective [Unknown]
  - Seasonal allergy [Unknown]
